FAERS Safety Report 16549134 (Version 4)
Quarter: 2020Q2

REPORT INFORMATION
  Report Type: Report from Study
  Country: US (occurrence: US)
  Receive Date: 20190709
  Receipt Date: 20200501
  Transmission Date: 20200713
  Serious: Yes (Hospitalization, Other)
  Sender: FDA-Public Use
  Company Number: US-B.I. PHARMACEUTICALS,INC./RIDGEFIELD-2019-BI-023304

PATIENT
  Age: 64 Year
  Sex: Female

DRUGS (1)
  1. OFEV [Suspect]
     Active Substance: NINTEDANIB
     Indication: IDIOPATHIC PULMONARY FIBROSIS
     Dosage: 150 MG BID
     Route: 048
     Dates: start: 20190430

REACTIONS (27)
  - Chest discomfort [Recovered/Resolved]
  - Chest discomfort [Recovered/Resolved]
  - Blood thyroid stimulating hormone increased [Unknown]
  - Dyspnoea [Unknown]
  - Retching [Not Recovered/Not Resolved]
  - Vomiting [Not Recovered/Not Resolved]
  - Vomiting [Unknown]
  - Oral herpes [Recovered/Resolved]
  - Hypothyroidism [Unknown]
  - Dyspnoea exertional [Not Recovered/Not Resolved]
  - Cheilitis [Recovered/Resolved]
  - Swelling face [Recovering/Resolving]
  - Epistaxis [Recovered/Resolved]
  - Vomiting [Unknown]
  - Respiratory tract congestion [Unknown]
  - Productive cough [Not Recovered/Not Resolved]
  - Swelling of eyelid [Unknown]
  - Pneumothorax [Not Recovered/Not Resolved]
  - Skin ulcer [Unknown]
  - Diarrhoea [Recovered/Resolved]
  - Cough [Not Recovered/Not Resolved]
  - Wheezing [Unknown]
  - Nausea [Not Recovered/Not Resolved]
  - Pleurisy [Not Recovered/Not Resolved]
  - Idiopathic pulmonary fibrosis [Unknown]
  - Visual impairment [Recovered/Resolved]
  - Nausea [Unknown]

NARRATIVE: CASE EVENT DATE: 2019
